FAERS Safety Report 7683419-5 (Version None)
Quarter: 2011Q3

REPORT INFORMATION
  Report Type: 
  Country: None (occurrence: None)
  Receive Date: 20110812
  Receipt Date: 20110812
  Transmission Date: 20111222
  Serious: Yes (Hospitalization)
  Sender: FDA-Public Use
  Company Number: None

PATIENT
  Age: 59 Year
  Sex: Male
  Weight: 116.8 kg

DRUGS (1)
  1. AMLODIPINE [Suspect]
     Indication: HYPERTENSION
     Dosage: 5 MG EVERY DAY PO
     Route: 048
     Dates: start: 20040101, end: 20110802

REACTIONS (4)
  - OEDEMA PERIPHERAL [None]
  - CARDIAC FAILURE CONGESTIVE [None]
  - DRUG INTERACTION [None]
  - DYSPNOEA EXERTIONAL [None]
